FAERS Safety Report 11702036 (Version 1)
Quarter: 2015Q4

REPORT INFORMATION
  Report Type: Spontaneous
  Country: NE (occurrence: NE)
  Receive Date: 20151105
  Receipt Date: 20151105
  Transmission Date: 20160304
  Serious: Yes (Hospitalization)
  Sender: FDA-Public Use
  Company Number: PHHY2015NE142207

PATIENT
  Age: 23 Year
  Sex: Female

DRUGS (5)
  1. DIAZEPAM. [Suspect]
     Active Substance: DIAZEPAM
     Indication: PSYCHIATRIC SYMPTOM
     Dosage: 60 MG, QD
     Route: 065
  2. PHENOBARBITAL. [Suspect]
     Active Substance: PHENOBARBITAL
     Indication: EPILEPSY
     Dosage: 200 MG, P.M
     Route: 065
  3. CHLORPROMAZINE. [Suspect]
     Active Substance: CHLORPROMAZINE
     Indication: PSYCHIATRIC SYMPTOM
     Dosage: 400 MG, BID
     Route: 065
  4. TRIHEXYPHENIDYL [Suspect]
     Active Substance: TRIHEXYPHENIDYL
     Indication: PARKINSON^S DISEASE
     Route: 065
  5. HALOPERIDOL. [Suspect]
     Active Substance: HALOPERIDOL
     Indication: PSYCHIATRIC SYMPTOM
     Dosage: 20 MG, UNK
     Route: 065

REACTIONS (1)
  - Toxic epidermal necrolysis [Recovering/Resolving]
